FAERS Safety Report 6699359-4 (Version None)
Quarter: 2010Q2

REPORT INFORMATION
  Report Type: 
  Country: None (occurrence: None)
  Receive Date: 20100427
  Receipt Date: 20100416
  Transmission Date: 20101027
  Serious: Yes (Hospitalization, Other)
  Sender: FDA-Public Use
  Company Number: US-BAXTER-2010BH010078

PATIENT
  Age: 14 Month
  Sex: Female

DRUGS (11)
  1. ATIVAN [Suspect]
     Indication: DRUG USE FOR UNKNOWN INDICATION
     Route: 065
  2. ATIVAN [Suspect]
     Route: 065
     Dates: start: 20100302
  3. MENACWY AND CONJUGATE VACCINE [Suspect]
     Indication: IMMUNISATION
     Route: 065
  4. ROTAVIRUS VACCINE [Concomitant]
     Indication: IMMUNISATION
     Route: 058
     Dates: start: 20090205, end: 20090205
  5. DIPHTHERIA,PERTUSSIS,TETANUS,POLIOMYELIT [Concomitant]
     Indication: IMMUNISATION
     Route: 065
  6. POLIOMYELITIS VACCINE INACTIVATED [Concomitant]
     Indication: IMMUNISATION
     Route: 058
     Dates: start: 20090205, end: 20090205
  7. PREVENAR [Concomitant]
     Indication: IMMUNISATION
     Route: 058
     Dates: start: 20090205, end: 20090205
  8. HAEMOPHILUS B CONJUGATE VACCINE (TETANUS) [Concomitant]
     Indication: IMMUNISATION
     Route: 058
     Dates: start: 20090205, end: 20090205
  9. FLUZONE [Concomitant]
     Indication: IMMUNISATION
     Route: 058
     Dates: start: 20091008, end: 20091009
  10. VARIVAX [Concomitant]
     Indication: IMMUNISATION
     Route: 058
     Dates: start: 20091211, end: 20091211
  11. MEASLES, MUMPS AND RUBELLA VACCINE [Concomitant]
     Indication: IMMUNISATION
     Route: 058
     Dates: start: 20091211, end: 20091211

REACTIONS (8)
  - ATELECTASIS [None]
  - CONVULSION [None]
  - DRUG INEFFECTIVE [None]
  - MENTAL STATUS CHANGES [None]
  - PNEUMONIA ASPIRATION [None]
  - RESPIRATORY DISTRESS [None]
  - UPPER RESPIRATORY TRACT INFECTION [None]
  - VIRAL RASH [None]
